FAERS Safety Report 13088497 (Version 9)
Quarter: 2020Q2

REPORT INFORMATION
  Report Type: Report from Study
  Country: CO (occurrence: CO)
  Receive Date: 20170105
  Receipt Date: 20200515
  Transmission Date: 20200713
  Serious: Yes (Death, Hospitalization, Disabling)
  Sender: FDA-Public Use
  Company Number: CO-INCYTE CORPORATION-2016IN008436

PATIENT

DRUGS (2)
  1. ACETAMINOPHEN AND CODEINE [Concomitant]
     Active Substance: ACETAMINOPHEN\CODEINE PHOSPHATE
     Indication: PAIN
     Dosage: 500 MG, BID
     Route: 048
  2. JAKAVI [Suspect]
     Active Substance: RUXOLITINIB
     Indication: POLYCYTHAEMIA VERA
     Dosage: 40 MG, QD
     Route: 048
     Dates: start: 20161001, end: 20170110

REACTIONS (14)
  - Malaise [Unknown]
  - Gastritis [Unknown]
  - Leukaemia [Unknown]
  - Weight increased [Unknown]
  - Yellow skin [Unknown]
  - Splenomegaly [Not Recovered/Not Resolved]
  - Pain [Unknown]
  - Depressed mood [Unknown]
  - Vomiting [Unknown]
  - Inappropriate schedule of product administration [Unknown]
  - Splenitis [Not Recovered/Not Resolved]
  - Abdominal pain upper [Unknown]
  - Pneumothorax [Fatal]
  - Polycythaemia vera [Unknown]
